FAERS Safety Report 10256634 (Version 1)
Quarter: 2014Q2

REPORT INFORMATION
  Report Type: Spontaneous
  Country: US (occurrence: US)
  Receive Date: 20140624
  Receipt Date: 20140624
  Transmission Date: 20141212
  Serious: Yes (Other)
  Sender: FDA-Public Use
  Company Number: ALCN2014US003532

PATIENT
  Sex: Female

DRUGS (1)
  1. DUREZOL [Suspect]
     Indication: POSTOPERATIVE CARE
     Dosage: UNK
     Route: 047

REACTIONS (3)
  - Hypotension [Not Recovered/Not Resolved]
  - Fatigue [Not Recovered/Not Resolved]
  - Renal failure acute [Not Recovered/Not Resolved]
